FAERS Safety Report 6333160-6 (Version None)
Quarter: 2009Q3

REPORT INFORMATION
  Report Type: 
  Country: None (occurrence: None)
  Receive Date: 20090828
  Receipt Date: 20090821
  Transmission Date: 20100115
  Serious: Yes (Other)
  Sender: FDA-Public Use
  Company Number: JP-MERCK-0907USA02196

PATIENT
  Age: 62 Year
  Sex: Male

DRUGS (10)
  1. ZETIA [Suspect]
     Indication: HYPERCHOLESTEROLAEMIA
     Route: 048
     Dates: start: 20090516, end: 20090609
  2. ASPIRIN [Concomitant]
     Route: 065
  3. BISOPROLOL FUMARATE [Concomitant]
     Route: 065
  4. OLMESARTAN MEDOXOMIL [Concomitant]
     Route: 065
  5. ISOSORBIDE MONONITRATE [Concomitant]
     Route: 065
  6. TEPRENONE [Concomitant]
     Route: 065
  7. LANSOPRAZOLE [Concomitant]
     Route: 065
  8. ALLOPURINOL [Concomitant]
     Route: 065
     Dates: start: 20090301
  9. CLOPIDOGREL BISULFATE [Concomitant]
     Route: 065
     Dates: start: 20090301
  10. PRAVASTATIN SODIUM [Concomitant]
     Route: 065
     Dates: start: 20090301

REACTIONS (1)
  - RENAL IMPAIRMENT [None]
